FAERS Safety Report 5166698-8 (Version None)
Quarter: 2006Q4

REPORT INFORMATION
  Report Type: 
  Country: None (occurrence: None)
  Receive Date: 20061129
  Receipt Date: 20061109
  Transmission Date: 20070319
  Serious: Yes (Hospitalization, Other)
  Sender: FDA-Public Use
  Company Number: 255894

PATIENT
  Age: 31 Year
  Sex: Male
  Weight: 115.6 kg

DRUGS (3)
  1. LEVEMIR [Suspect]
     Indication: BLOOD INSULIN
     Dosage: SUBCUTANEOUS
     Route: 058
     Dates: start: 20060330, end: 20060807
  2. NOVOLOG (INSULIN ASPART, INSULIN ASPART) [Concomitant]
  3. CRESTOR /01588601/ (ROSUVASTATIN) [Concomitant]

REACTIONS (8)
  - CONVULSION [None]
  - FALL [None]
  - HAEMATOCRIT DECREASED [None]
  - HAEMOGLOBIN DECREASED [None]
  - HYPERGLYCAEMIA [None]
  - PRURITUS [None]
  - TONGUE BITING [None]
  - TREATMENT NONCOMPLIANCE [None]
